FAERS Safety Report 4386661-4 (Version None)
Quarter: 2004Q2

REPORT INFORMATION
  Report Type: 
  Country: None (occurrence: None)
  Receive Date: 20040629
  Receipt Date: 20040617
  Transmission Date: 20050107
  Serious: Yes (Hospitalization)
  Sender: FDA-Public Use
  Company Number: FR-BRISTOL-MYERS SQUIBB COMPANY-12618898

PATIENT
  Age: 49 Year
  Sex: Male

DRUGS (7)
  1. OXACILLIN [Suspect]
     Dates: start: 20040409, end: 20040428
  2. TRAMADOL HCL [Suspect]
     Route: 048
     Dates: start: 20040412, end: 20040429
  3. OFLOCET [Concomitant]
     Dates: start: 20040415, end: 20040427
  4. SODIC HEPARIN [Concomitant]
  5. PREVISCAN [Concomitant]
     Dates: start: 20040319
  6. MOPRAL [Concomitant]
     Dates: start: 20040330
  7. SECTRAL [Concomitant]

REACTIONS (3)
  - ALANINE AMINOTRANSFERASE INCREASED [None]
  - ASPARTATE AMINOTRANSFERASE INCREASED [None]
  - BLOOD CREATININE INCREASED [None]
